FAERS Safety Report 4987189-0 (Version None)
Quarter: 2006Q2

REPORT INFORMATION
  Report Type: 
  Country: None (occurrence: None)
  Receive Date: 20060501
  Receipt Date: 20060421
  Transmission Date: 20061013
  Serious: Yes (Hospitalization)
  Sender: FDA-Public Use
  Company Number: IT-ROCHE-445261

PATIENT
  Age: 71 Year
  Sex: Male

DRUGS (9)
  1. ROFERON-A [Suspect]
     Indication: DRUG USE FOR UNKNOWN INDICATION
     Dosage: FORM REPORTED AS VIAL.
     Route: 058
     Dates: start: 20051220, end: 20060110
  2. TICLID [Suspect]
     Indication: THROMBOSIS PROPHYLAXIS
     Route: 048
     Dates: start: 19960101, end: 20060127
  3. VELBE [Concomitant]
     Dosage: FORM REPORTED AS VIAL.
     Route: 042
     Dates: start: 20051220, end: 20060110
  4. SELOKEN [Concomitant]
  5. MONOCINQUE RETARD [Concomitant]
     Route: 048
  6. TRIATEC [Concomitant]
     Route: 048
  7. TORVAST [Concomitant]
     Route: 048
  8. MITTOVAL [Concomitant]
     Route: 048
  9. NOVONORM [Concomitant]
     Route: 048

REACTIONS (3)
  - ANAEMIA [None]
  - GASTRIC ULCER [None]
  - HAEMATEMESIS [None]
